FAERS Safety Report 10654402 (Version 5)
Quarter: 2015Q2

REPORT INFORMATION
  Report Type: Report from Study
  Country: CA (occurrence: CA)
  Receive Date: 20141216
  Receipt Date: 20150601
  Transmission Date: 20150821
  Serious: Yes (Hospitalization)
  Sender: FDA-Public Use
  Company Number: PHHY2014CA140165

PATIENT
  Sex: Male

DRUGS (4)
  1. GLEEVEC [Suspect]
     Active Substance: IMATINIB MESYLATE
     Indication: ACUTE LYMPHOCYTIC LEUKAEMIA
     Dosage: 400 MG, QD
     Route: 048
     Dates: start: 20140910
  2. CLONAZEPAM. [Concomitant]
     Active Substance: CLONAZEPAM
     Indication: PRODUCT USED FOR UNKNOWN INDICATION
     Route: 065
  3. GLEEVEC [Suspect]
     Active Substance: IMATINIB MESYLATE
     Dosage: 400 MG, QD
     Route: 048
  4. QUETIAPINE [Concomitant]
     Active Substance: QUETIAPINE
     Indication: PRODUCT USED FOR UNKNOWN INDICATION
     Route: 065

REACTIONS (11)
  - Abdominal discomfort [Unknown]
  - Abdominal pain upper [Recovering/Resolving]
  - Neuralgia [Recovered/Resolved]
  - Appetite disorder [Recovering/Resolving]
  - Allodynia [Unknown]
  - Paraesthesia [Unknown]
  - Mania [Unknown]
  - Post lumbar puncture syndrome [Recovered/Resolved]
  - Muscular weakness [Recovered/Resolved]
  - Gastrooesophageal reflux disease [Unknown]
  - Cardiac disorder [Unknown]
